FAERS Safety Report 22181215 (Version 1)
Quarter: 2023Q2

REPORT INFORMATION
  Report Type: Spontaneous
  Country: US (occurrence: None)
  Receive Date: 20230405
  Receipt Date: 20230405
  Transmission Date: 20230721
  Serious: Yes (Disabling)
  Sender: FDA-Public Use
  Company Number: None

PATIENT
  Age: 55 Year
  Sex: Male
  Weight: 125.55 kg

DRUGS (13)
  1. TESTOSTERONE CYPIONATE [Suspect]
     Active Substance: TESTOSTERONE CYPIONATE
     Indication: Blood testosterone decreased
     Dosage: OTHER QUANTITY : 1 INJECTION(S);?OTHER FREQUENCY : 10-14 DAYS;?
     Route: 030
     Dates: start: 20230104, end: 20230329
  2. VENTOLIN HFA [Concomitant]
     Active Substance: ALBUTEROL SULFATE
  3. ASPIRIN [Concomitant]
     Active Substance: ASPIRIN
  4. Bualbial-acetaminophen-caffeine [Concomitant]
  5. celeoxid [Concomitant]
  6. DILTIAZEM [Concomitant]
  7. FLECAINIDE ACETATE [Concomitant]
     Active Substance: FLECAINIDE ACETATE
  8. LYRICA [Concomitant]
  9. TESTOSTERONE CYPIONATE [Concomitant]
     Active Substance: TESTOSTERONE CYPIONATE
  10. TIZANIDINE [Concomitant]
  11. GABAPENTIN [Concomitant]
  12. cranberry concentrae [Concomitant]
  13. FISH OIL [Concomitant]
     Active Substance: FISH OIL

REACTIONS (13)
  - Product supply issue [None]
  - Incorrect dose administered [None]
  - Hypoaesthesia [None]
  - Headache [None]
  - Drug ineffective [None]
  - Vision blurred [None]
  - Suicidal ideation [None]
  - Blood testosterone decreased [None]
  - Product quality issue [None]
  - Testicular atrophy [None]
  - Mental status changes [None]
  - Apathy [None]
  - Asthenia [None]

NARRATIVE: CASE EVENT DATE: 20230404
